FAERS Safety Report 6269481-5 (Version None)
Quarter: 2009Q3

REPORT INFORMATION
  Report Type: 
  Country: None (occurrence: None)
  Receive Date: 20090714
  Receipt Date: 20090629
  Transmission Date: 20100115
  Serious: No
  Sender: FDA-Public Use
  Company Number: A01200906995

PATIENT
  Age: 25 Year
  Sex: Male

DRUGS (1)
  1. MYSLEE - (ZOLPIDEM TARTRATE) - TABLET - 5 MG [Suspect]
     Indication: INSOMNIA
     Dosage: 10 MG QD ORAL
     Route: 048
     Dates: start: 20090627, end: 20090627

REACTIONS (4)
  - AMNESIA [None]
  - ROAD TRAFFIC ACCIDENT [None]
  - SLEEP TALKING [None]
  - SOMNAMBULISM [None]
